FAERS Safety Report 11672591 (Version 2)
Quarter: 2015Q4

REPORT INFORMATION
  Report Type: Spontaneous
  Country: NL (occurrence: NL)
  Receive Date: 20151028
  Receipt Date: 20151110
  Transmission Date: 20160304
  Serious: Yes (Life-Threatening, Hospitalization)
  Sender: FDA-Public Use
  Company Number: NL-ROCHE-1651371

PATIENT
  Age: 80 Year
  Sex: Male
  Weight: 76 kg

DRUGS (9)
  1. ISOSORBIDE MONONITRATE. [Concomitant]
     Active Substance: ISOSORBIDE MONONITRATE
     Dosage: 1 KEER PER DAG 1 STUK(S)
     Route: 048
     Dates: start: 20000101
  2. SIMVASTATINE [Concomitant]
     Active Substance: SIMVASTATIN
     Dosage: 1 KEER PER DAG 1 STUK(S)
     Route: 048
     Dates: start: 20000101
  3. SPIRONOLACTON [Concomitant]
     Active Substance: SPIRONOLACTONE
     Dosage: 1 KEER PER DAG 1 STUK(S)
     Route: 048
     Dates: start: 20150620
  4. CEFTRIAXONE. [Suspect]
     Active Substance: CEFTRIAXONE
     Indication: UROSEPSIS
     Dosage: 1 KEER PER DAG 1 STUK(S)
     Route: 042
     Dates: start: 20151010, end: 20151015
  5. ACENOCOUMAROL [Concomitant]
     Active Substance: ACENOCOUMAROL
     Dosage: 1 KEER PER DAG 1 STUK(S)
     Route: 048
     Dates: start: 20000101, end: 20151012
  6. FUROSEMIDE. [Concomitant]
     Active Substance: FUROSEMIDE
     Dosage: 1 KEER PER DAG 1 STUK(S)
     Route: 048
     Dates: start: 20000101
  7. PANTOPRAZOL [Concomitant]
     Active Substance: PANTOPRAZOLE SODIUM
     Dosage: 1 KEER PER DAG 1 STUK(S)
     Route: 048
     Dates: start: 20000101
  8. DIGOXINE [Concomitant]
     Active Substance: DIGOXIN
     Dosage: 1 KEER PER DAG 1 STUK(S)
     Route: 048
     Dates: start: 20000101
  9. CANDESARTAN [Concomitant]
     Active Substance: CANDESARTAN
     Dosage: 1 KEER PER DAG 1 STUK(S)
     Route: 048
     Dates: start: 20000101

REACTIONS (1)
  - Immune thrombocytopenic purpura [Recovered/Resolved]

NARRATIVE: CASE EVENT DATE: 20151011
